FAERS Safety Report 9102644 (Version 6)
Quarter: 2014Q1

REPORT INFORMATION
  Report Type: Spontaneous
  Country: US (occurrence: US)
  Receive Date: 20130219
  Receipt Date: 20140221
  Transmission Date: 20141002
  Serious: Yes (Death, Hospitalization, Other)
  Sender: FDA-Public Use
  Company Number: US-009507513-1302USA008072

PATIENT
  Sex: Female
  Weight: 75.74 kg

DRUGS (7)
  1. FOSAMAX [Suspect]
     Indication: OSTEOPOROSIS
     Dosage: 70 MG, QW
     Route: 048
     Dates: start: 201004, end: 20120113
  2. ALENDRONATE SODIUM [Suspect]
     Indication: OSTEOPOROSIS
     Dosage: 70 MG, UNK
     Route: 048
     Dates: start: 20100405, end: 20111026
  3. LANTUS [Concomitant]
     Indication: DIABETES MELLITUS
  4. HUMALOG [Concomitant]
     Indication: DIABETES MELLITUS
  5. NOVOLOG [Concomitant]
     Indication: DIABETES MELLITUS
  6. ASPIRIN [Concomitant]
     Indication: CORONARY ARTERY DISEASE
  7. BISOPROLOL [Concomitant]
     Indication: CORONARY ARTERY DISEASE

REACTIONS (42)
  - Intramedullary rod insertion [Unknown]
  - Femur fracture [Unknown]
  - Intramedullary rod insertion [Unknown]
  - Pulmonary embolism [Fatal]
  - Shock haemorrhagic [Unknown]
  - Femur fracture [Unknown]
  - Cardiac arrest [Unknown]
  - Renal failure acute [Unknown]
  - Renal failure chronic [Not Recovered/Not Resolved]
  - Spinal laminectomy [Unknown]
  - Foraminotomy [Unknown]
  - Skin graft [Unknown]
  - Atrial thrombosis [Unknown]
  - Procedural hypotension [Unknown]
  - Deep vein thrombosis [Unknown]
  - Haemorrhage [Unknown]
  - Femur fracture [Recovering/Resolving]
  - Full blood count decreased [Recovering/Resolving]
  - Intervertebral disc protrusion [Unknown]
  - Venous insufficiency [Unknown]
  - Hypothyroidism [Unknown]
  - Cardiac failure congestive [Unknown]
  - Essential hypertension [Unknown]
  - Asthma [Unknown]
  - Upper-airway cough syndrome [Unknown]
  - Nasal congestion [Unknown]
  - Memory impairment [Unknown]
  - Affective disorder [Unknown]
  - Dementia [Unknown]
  - Restless legs syndrome [Unknown]
  - Diabetic neuropathy [Unknown]
  - Hyperlipidaemia [Unknown]
  - Nephrolithiasis [Unknown]
  - Intervertebral disc protrusion [Recovered/Resolved]
  - Cardiomegaly [Unknown]
  - Cerebral atrophy [Unknown]
  - Cerebral small vessel ischaemic disease [Unknown]
  - Blood pressure decreased [Unknown]
  - Joint swelling [Unknown]
  - Arthralgia [Unknown]
  - Arthralgia [Unknown]
  - Gastrooesophageal reflux disease [Unknown]
